FAERS Safety Report 9646375 (Version 3)
Quarter: 2014Q1

REPORT INFORMATION
  Report Type: Spontaneous
  Country: NO (occurrence: NO)
  Receive Date: 20131025
  Receipt Date: 20140123
  Transmission Date: 20141002
  Serious: Yes (Death, Life-Threatening)
  Sender: FDA-Public Use
  Company Number: NO-WATSON-2013-19200

PATIENT
  Age: 20 Year
  Sex: Female

DRUGS (21)
  1. VIVAL [Suspect]
     Indication: DEPRESSION
     Dosage: UNK
     Route: 065
  2. PINEX FORTE [Suspect]
     Indication: DEPRESSION
     Dosage: UNK
     Route: 065
  3. TRAMADOL (UNKNOWN) [Suspect]
     Indication: DEPRESSION
     Dosage: UNK
     Route: 065
  4. RIVOTRIL [Suspect]
     Indication: DEPRESSION
     Dosage: UNK
     Route: 065
  5. SOBRIL [Suspect]
     Indication: PRODUCT USED FOR UNKNOWN INDICATION
     Dosage: UNK
     Route: 065
  6. CIPRAMIL [Suspect]
     Indication: PRODUCT USED FOR UNKNOWN INDICATION
     Dosage: UNK
     Route: 065
  7. NOBLIGAN [Suspect]
     Indication: DEPRESSION
     Dosage: UNK; STRENGTH: 50 MG-200 MG
     Route: 065
  8. CIPRALEX [Suspect]
     Indication: DEPRESSION
     Dosage: UNK
     Route: 065
  9. CATAPRESAN [Suspect]
     Indication: DEPRESSION
     Dosage: UNK; STRENGTH: 25 MG TO 50 MG
     Route: 065
  10. ORFIRIL [Suspect]
     Indication: DEPRESSION
     Dosage: UNK; STRENGTH: 600 MG-1200 MG
     Route: 065
  11. SEROQUEL [Suspect]
     Indication: DEPRESSION
     Dosage: UNK
     Route: 065
  12. LAMICTAL [Suspect]
     Indication: DEPRESSION
     Dosage: UNK; STRENGTH: 25 MG, 50 MG, 100 MG
     Route: 065
  13. NOZINAN /00038601/ [Suspect]
     Indication: DEPRESSION
     Dosage: UNK
     Route: 065
  14. SAROTEX [Suspect]
     Indication: DEPRESSION
     Dosage: UNK
     Route: 065
  15. TRUXAL [Suspect]
     Indication: PRODUCT USED FOR UNKNOWN INDICATION
     Dosage: UNK
     Route: 065
  16. ATARAX /00058402/ [Suspect]
     Indication: DEPRESSION
     Dosage: UNK
     Route: 065
  17. IMOVANE [Suspect]
     Indication: DEPRESSION
     Dosage: UNK
     Route: 048
  18. OXYNORM [Suspect]
     Indication: DEPRESSION
     Dosage: UNK; STRENGTH: 5 MG-10 MG
     Route: 065
  19. REMERON [Suspect]
     Indication: DEPRESSION
     Dosage: UNK
     Route: 065
  20. DIAMORPHINE [Concomitant]
     Indication: PRODUCT USED FOR UNKNOWN INDICATION
     Dosage: UNK
     Route: 065
  21. CYANOCOBALAMIN [Concomitant]
     Indication: PRODUCT USED FOR UNKNOWN INDICATION
     Dosage: UNK; ACCORDING TO MAH PRODUCT NAME IS ^FORTE^
     Route: 065

REACTIONS (2)
  - Completed suicide [Fatal]
  - Self injurious behaviour [Unknown]
